FAERS Safety Report 13008679 (Version 1)
Quarter: 2016Q4

REPORT INFORMATION
  Report Type: Other
  Country: CA (occurrence: CA)
  Receive Date: 20161208
  Receipt Date: 20161208
  Transmission Date: 20170207
  Serious: Yes (Other)
  Sender: FDA-Public Use
  Company Number: CA-APOTEX-2016AP015234

PATIENT
  Age: 79 Year
  Sex: Male

DRUGS (5)
  1. MICARDIS [Concomitant]
     Active Substance: TELMISARTAN
     Indication: PRODUCT USED FOR UNKNOWN INDICATION
     Dosage: UNK
     Route: 065
  2. PREDNISONE. [Concomitant]
     Active Substance: PREDNISONE
     Indication: PRODUCT USED FOR UNKNOWN INDICATION
     Route: 065
  3. APIXABAN [Concomitant]
     Active Substance: APIXABAN
     Indication: PRODUCT USED FOR UNKNOWN INDICATION
     Dosage: UNK
     Route: 065
  4. APO-ALENDRONATE [Suspect]
     Active Substance: ALENDRONATE SODIUM
     Indication: BONE DENSITY ABNORMAL
  5. APO-ALENDRONATE [Suspect]
     Active Substance: ALENDRONATE SODIUM
     Indication: HIP FRACTURE
     Dosage: 70 MG, WEEKLY
     Route: 048

REACTIONS (3)
  - Drug eruption [Recovering/Resolving]
  - Eosinophil count increased [Recovering/Resolving]
  - Perivascular dermatitis [Recovering/Resolving]
